FAERS Safety Report 17495907 (Version 1)
Quarter: 2020Q1

REPORT INFORMATION
  Report Type: Spontaneous
  Country: DE (occurrence: DE)
  Receive Date: 20200304
  Receipt Date: 20200304
  Transmission Date: 20200409
  Serious: Yes (Hospitalization)
  Sender: FDA-Public Use
  Company Number: NVSC2020DE057516

PATIENT
  Age: 60 Year
  Sex: Male

DRUGS (14)
  1. HUMINSULIN BASAL [Concomitant]
     Active Substance: INSULIN NOS
     Indication: PRODUCT USED FOR UNKNOWN INDICATION
     Dosage: 40 IU, QD(0-0-1-0)
     Route: 065
  2. CLINDAMYCIN. [Suspect]
     Active Substance: CLINDAMYCIN
     Indication: PRODUCT USED FOR UNKNOWN INDICATION
     Dosage: 600 MG, ABGESETZ
     Route: 065
  3. COTRIMOXAZOLE [Suspect]
     Active Substance: SULFAMETHOXAZOLE\TRIMETHOPRIM
     Indication: PRODUCT USED FOR UNKNOWN INDICATION
     Dosage: NK MG, ABGESTZT
     Route: 065
  4. TORASEMIDE [Concomitant]
     Active Substance: TORSEMIDE
     Indication: PRODUCT USED FOR UNKNOWN INDICATION
     Dosage: 10 MG, QD(1-0-0-0)
     Route: 065
  5. CLOPIDOGREL [Concomitant]
     Active Substance: CLOPIDOGREL BISULFATE
     Indication: PRODUCT USED FOR UNKNOWN INDICATION
     Dosage: 75 MG, QD9(1-0-0-0)
     Route: 065
  6. CARBIMAZOLE [Suspect]
     Active Substance: CARBIMAZOLE
     Indication: PRODUCT USED FOR UNKNOWN INDICATION
     Dosage: 10 MBQ, BID (1-0-1-0)
     Route: 065
  7. ACETYLSALICYLIC ACID [Concomitant]
     Active Substance: ASPIRIN
     Indication: PRODUCT USED FOR UNKNOWN INDICATION
     Dosage: 100 MG, QD(1-0-0-0   )
     Route: 065
  8. METOPROLOL. [Concomitant]
     Active Substance: METOPROLOL
     Indication: PRODUCT USED FOR UNKNOWN INDICATION
     Dosage: 95 MG, BID(1-0-1-0)
     Route: 065
  9. METAMIZOL [Concomitant]
     Active Substance: METAMIZOLE SODIUM
     Indication: PRODUCT USED FOR UNKNOWN INDICATION
     Dosage: 1000 MG
     Route: 065
  10. RAMIPRIL. [Concomitant]
     Active Substance: RAMIPRIL
     Indication: PRODUCT USED FOR UNKNOWN INDICATION
     Dosage: 5 MG, QD(1-0-0-0)
     Route: 065
  11. METFORMIN [Concomitant]
     Active Substance: METFORMIN HYDROCHLORIDE
     Indication: PRODUCT USED FOR UNKNOWN INDICATION
     Dosage: 1000 MG, BID(1-0-1-0)
     Route: 065
  12. VICTOZA [Concomitant]
     Active Substance: LIRAGLUTIDE
     Indication: PRODUCT USED FOR UNKNOWN INDICATION
     Dosage: 6MG/ML INJEKTIONSL?SUNG IN EINEM FERTIGPEN
     Route: 058
  13. CEFTAZIDIME. [Suspect]
     Active Substance: CEFTAZIDIME
     Indication: PRODUCT USED FOR UNKNOWN INDICATION
     Dosage: NK MG, ABGESTZT
     Route: 065
  14. HUMINSULIN [Concomitant]
     Active Substance: INSULIN HUMAN
     Indication: PRODUCT USED FOR UNKNOWN INDICATION
     Dosage: NACH SCHEMA
     Route: 065

REACTIONS (9)
  - Therapeutic drug monitoring analysis not performed [Unknown]
  - Abdominal pain [Unknown]
  - Abdominal distension [Unknown]
  - Inflammation [Unknown]
  - Vomiting [Unknown]
  - Nausea [Unknown]
  - General physical health deterioration [Unknown]
  - Dehydration [Unknown]
  - Diarrhoea [Unknown]
